FAERS Safety Report 14393373 (Version 3)
Quarter: 2018Q4

REPORT INFORMATION
  Report Type: Spontaneous
  Country: US (occurrence: US)
  Receive Date: 20180116
  Receipt Date: 20181015
  Transmission Date: 20190204
  Serious: Yes (Hospitalization, Other)
  Sender: FDA-Public Use
  Company Number: US-DSJP-DSU-2017-140012

PATIENT

DRUGS (1)
  1. BENICAR [Suspect]
     Active Substance: OLMESARTAN MEDOXOMIL
     Indication: HYPERTENSION
     Dosage: 20 MG, QD
     Route: 048
     Dates: end: 20170825

REACTIONS (11)
  - Sprue-like enteropathy [Recovered/Resolved]
  - Haemorrhoids [Not Recovered/Not Resolved]
  - Syncope [Unknown]
  - Reactive gastropathy [Unknown]
  - Large intestine polyp [Recovered/Resolved]
  - Gastric polyps [Unknown]
  - Acute kidney injury [Unknown]
  - Gastrooesophageal reflux disease [Unknown]
  - Diverticulum intestinal [Recovering/Resolving]
  - Diverticulitis [Recovered/Resolved]
  - Rectal polyp [Recovered/Resolved]

NARRATIVE: CASE EVENT DATE: 20081223
